FAERS Safety Report 14590705 (Version 1)
Quarter: 2018Q1

REPORT INFORMATION
  Report Type: Spontaneous
  Country: US (occurrence: US)
  Receive Date: 20180301
  Receipt Date: 20180301
  Transmission Date: 20180509
  Serious: Yes (Hospitalization)
  Sender: FDA-Public Use
  Company Number: None

PATIENT
  Age: 81 Year
  Sex: Male
  Weight: 91 kg

DRUGS (2)
  1. RUXOLITINIB [Suspect]
     Active Substance: RUXOLITINIB
     Indication: LEUKAEMIA
     Route: 048
     Dates: start: 20170610, end: 20170805
  2. RUXOLITINIB [Suspect]
     Active Substance: RUXOLITINIB
     Indication: LEUKAEMIA
     Route: 048
     Dates: start: 20170809

REACTIONS (2)
  - Therapy cessation [None]
  - Dizziness [None]

NARRATIVE: CASE EVENT DATE: 20170801
